FAERS Safety Report 12838507 (Version 1)
Quarter: 2016Q4

REPORT INFORMATION
  Report Type: Spontaneous
  Country: PH (occurrence: PH)
  Receive Date: 20161012
  Receipt Date: 20161012
  Transmission Date: 20170207
  Serious: Yes (Congenital Anomaly)
  Sender: FDA-Public Use
  Company Number: PH-ASTELLAS-2016JP016596AA

PATIENT
  Sex: Female
  Weight: 2 kg

DRUGS (3)
  1. TACROLIMUS. [Suspect]
     Active Substance: TACROLIMUS
     Indication: EXPOSURE DURING BREAST FEEDING
     Dosage: UNK UNK, UNKNOWN FREQ.
     Route: 063
     Dates: start: 201103
  2. AZATHIOPRINE. [Concomitant]
     Active Substance: AZATHIOPRINE
     Indication: EXPOSURE DURING BREAST FEEDING
     Dosage: UNK UNK, UNKNOWN FREQ.
     Route: 063
     Dates: start: 201410
  3. MYCOPHENOLATE MOFETIL. [Concomitant]
     Active Substance: MYCOPHENOLATE MOFETIL
     Indication: EXPOSURE DURING BREAST FEEDING
     Dosage: UNK UNK, UNKNOWN FREQ.
     Route: 063
     Dates: start: 201103

REACTIONS (2)
  - Low birth weight baby [Unknown]
  - Exposure during breast feeding [Unknown]
